FAERS Safety Report 10435394 (Version 3)
Quarter: 2014Q3

REPORT INFORMATION
  Report Type: Spontaneous
  Country: US (occurrence: US)
  Receive Date: 20140908
  Receipt Date: 20140925
  Transmission Date: 20150326
  Serious: Yes (Hospitalization, Other)
  Sender: FDA-Public Use
  Company Number: US-UNITED THERAPEUTICS-UNT-2014-004529

PATIENT
  Age: 88 Year
  Sex: Female
  Weight: 64.85 kg

DRUGS (15)
  1. REVATIO [Concomitant]
     Active Substance: SILDENAFIL CITRATE
     Indication: PRODUCT USED FOR UNKNOWN INDICATION
  2. ONDANSETRON HCL [Concomitant]
     Active Substance: ONDANSETRON HYDROCHLORIDE
     Indication: PRODUCT USED FOR UNKNOWN INDICATION
     Dosage: 1 TAB, Q4H AS NEEDED FOR NAUSEA
     Route: 048
     Dates: start: 20140107
  3. REMODULIN [Suspect]
     Active Substance: TREPROSTINIL
     Indication: COR PULMONALE CHRONIC
     Dosage: 0.029 ?G/KG, CONTINUING
     Route: 041
     Dates: start: 20080918
  4. WARFARIN SODIUM. [Concomitant]
     Active Substance: WARFARIN SODIUM
     Indication: PRODUCT USED FOR UNKNOWN INDICATION
     Dosage: 1 ORAL FOR 5 DAYS OR AS DIRECTED BY PHYSICIAN
     Route: 048
     Dates: start: 20140317
  5. XALATAN [Concomitant]
     Active Substance: LATANOPROST
     Indication: PRODUCT USED FOR UNKNOWN INDICATION
     Dosage: 1 DROP TO BOTH EYES AT BEDTIME
  6. LETAIRIS [Concomitant]
     Active Substance: AMBRISENTAN
     Indication: PRODUCT USED FOR UNKNOWN INDICATION
     Dosage: 10 MG, 3PM QD
     Route: 048
  7. OMEPRAZOLE. [Concomitant]
     Active Substance: OMEPRAZOLE
     Indication: PRODUCT USED FOR UNKNOWN INDICATION
     Dosage: 1 ORAL TWO TIMES DAILY
     Route: 048
     Dates: start: 20140707
  8. IRON [Concomitant]
     Active Substance: IRON
     Indication: PRODUCT USED FOR UNKNOWN INDICATION
     Dosage: 650 UNK, BID
     Route: 048
     Dates: start: 20140519
  9. POTASSIUM [Concomitant]
     Active Substance: POTASSIUM
     Indication: PRODUCT USED FOR UNKNOWN INDICATION
     Dosage: 10 MEQ, BID
     Route: 048
     Dates: start: 20140421
  10. LASIX [Concomitant]
     Active Substance: FUROSEMIDE
     Indication: PRODUCT USED FOR UNKNOWN INDICATION
     Dosage: 80 MG, QD
     Route: 048
     Dates: start: 20140624
  11. WARFARIN SODIUM. [Concomitant]
     Active Substance: WARFARIN SODIUM
     Dosage: 1 TAB, 2 TIMES/WK
     Route: 048
     Dates: start: 20140503
  12. REMODULIN [Suspect]
     Active Substance: TREPROSTINIL
     Dosage: 0.029 ?G/KG, CONTINUING
     Route: 041
     Dates: start: 20081013
  13. TRAMADOL [Concomitant]
     Active Substance: TRAMADOL
     Indication: PRODUCT USED FOR UNKNOWN INDICATION
     Dosage: 1 TO 2 ORAL TID PRN
     Route: 048
     Dates: start: 20140414
  14. VITAMIN D                          /00107901/ [Concomitant]
     Active Substance: ERGOCALCIFEROL
     Indication: PRODUCT USED FOR UNKNOWN INDICATION
     Dosage: UNK
  15. WARFARIN SODIUM. [Concomitant]
     Active Substance: WARFARIN SODIUM
     Dosage: 1 ORAL MONDAY, WEDNESDAY, AND FRIDAY
     Route: 048
     Dates: start: 20130528

REACTIONS (30)
  - Device related infection [Recovering/Resolving]
  - Pyrexia [Unknown]
  - Purulent discharge [Unknown]
  - Nausea [Unknown]
  - Injection site erythema [Unknown]
  - Dysphagia [Unknown]
  - Oedema peripheral [Unknown]
  - Rales [Unknown]
  - Drug ineffective [Unknown]
  - Asthenia [Unknown]
  - Dyspnoea [Unknown]
  - Overdose [Unknown]
  - Vomiting [Unknown]
  - Fall [Unknown]
  - Oxygen saturation decreased [Unknown]
  - Joint swelling [Unknown]
  - Pyelonephritis [Unknown]
  - Infection [Unknown]
  - Chills [Unknown]
  - Sepsis [Unknown]
  - Malaise [Unknown]
  - Joint stiffness [Unknown]
  - Acute respiratory failure [Unknown]
  - Renal failure [Unknown]
  - Hypotension [Unknown]
  - Respiratory failure [Unknown]
  - Rash [Unknown]
  - Injection site rash [Unknown]
  - Fatigue [Unknown]
  - Petechiae [Unknown]

NARRATIVE: CASE EVENT DATE: 20140714
